FAERS Safety Report 5198695-0 (Version None)
Quarter: 2007Q1

REPORT INFORMATION
  Report Type: 
  Country: None (occurrence: None)
  Receive Date: 20070104
  Receipt Date: 20061226
  Transmission Date: 20070707
  Serious: Yes (Other)
  Sender: FDA-Public Use
  Company Number: 2006UW28651

PATIENT
  Age: 74 Year
  Sex: Male

DRUGS (2)
  1. PRILOSEC OTC [Suspect]
     Dosage: 1 TABLET DAILY
     Route: 048
     Dates: start: 20060426, end: 20061225
  2. SYNTHROID [Concomitant]

REACTIONS (1)
  - TRACHEAL CANCER [None]
